FAERS Safety Report 13853949 (Version 2)
Quarter: 2017Q4

REPORT INFORMATION
  Report Type: Spontaneous
  Country: US (occurrence: US)
  Receive Date: 20170809
  Receipt Date: 20171011
  Transmission Date: 20180320
  Serious: No
  Sender: FDA-Public Use
  Company Number: US-BAYER-2017-150911

PATIENT
  Age: 43 Year
  Sex: Male

DRUGS (2)
  1. MAGNEVIST [Suspect]
     Active Substance: GADOPENTETATE DIMEGLUMINE
     Indication: NUCLEAR MAGNETIC RESONANCE IMAGING BRAIN
  2. MAGNEVIST [Suspect]
     Active Substance: GADOPENTETATE DIMEGLUMINE
     Indication: COMPUTERISED TOMOGRAM
     Dosage: 20 ML, ONCE
     Dates: start: 20170719

REACTIONS (5)
  - Urticaria [None]
  - Nausea [None]
  - Vomiting [None]
  - Drug hypersensitivity [None]
  - Sneezing [None]

NARRATIVE: CASE EVENT DATE: 20170719
